FAERS Safety Report 20350776 (Version 1)
Quarter: 2022Q1

REPORT INFORMATION
  Report Type: Spontaneous
  Country: US (occurrence: None)
  Receive Date: 20220117
  Receipt Date: 20220117
  Transmission Date: 20220423
  Serious: No
  Sender: FDA-Public Use
  Company Number: None

PATIENT
  Age: 74 Year
  Sex: Female
  Weight: 77 kg

DRUGS (11)
  1. TEMOZOLOMIDE [Suspect]
     Active Substance: TEMOZOLOMIDE
     Indication: Brain neoplasm malignant
     Dosage: FREQUENCY : DAILY;?
     Route: 048
     Dates: start: 20220105
  2. ATORVASTATIN [Concomitant]
     Active Substance: ATORVASTATIN
  3. LEVETIRACETAM [Concomitant]
     Active Substance: LEVETIRACETAM
  4. Valsartan-Hydrochlorothiazide 160-12.65mg [Concomitant]
  5. ESCITALOPRAM [Concomitant]
     Active Substance: ESCITALOPRAM OXALATE
  6. Lacosamide 200mg [Concomitant]
  7. Fluticasone 50mcg/act [Concomitant]
  8. LEVOTHYROXINE [Concomitant]
     Active Substance: LEVOTHYROXINE
  9. CRESTOR [Concomitant]
     Active Substance: ROSUVASTATIN CALCIUM
  10. Dexamethasone 1mg [Concomitant]
  11. LEVOTHYROXINE [Concomitant]
     Active Substance: LEVOTHYROXINE

REACTIONS (3)
  - Vomiting [None]
  - Syncope [None]
  - Asthenia [None]

NARRATIVE: CASE EVENT DATE: 20220117
